FAERS Safety Report 6602258-7 (Version None)
Quarter: 2010Q1

REPORT INFORMATION
  Report Type: 
  Country: None (occurrence: None)
  Receive Date: 20100225
  Receipt Date: 20100222
  Transmission Date: 20100710
  Serious: Yes (Other)
  Sender: FDA-Public Use
  Company Number: NO-PFIZER INC-2010022620

PATIENT
  Sex: Male

DRUGS (3)
  1. MINDIAB [Suspect]
     Route: 048
  2. GLUCOPHAGE [Concomitant]
  3. INSULIN [Concomitant]

REACTIONS (1)
  - MYOCARDIAL INFARCTION [None]
